FAERS Safety Report 10756566 (Version 1)
Quarter: 2015Q1

REPORT INFORMATION
  Report Type: Spontaneous
  Country: US (occurrence: US)
  Receive Date: 20150202
  Receipt Date: 20150202
  Transmission Date: 20150721
  Serious: No
  Sender: FDA-Public Use
  Company Number: US-BIOMARINAP-US-2015-105167

PATIENT
  Age: 6 Year
  Sex: Male
  Weight: 13 kg

DRUGS (1)
  1. NAGLAZYME [Suspect]
     Active Substance: GALSULFASE
     Indication: MUCOPOLYSACCHARIDOSIS VI
     Dosage: 15 MG, QW
     Route: 042
     Dates: start: 20130312

REACTIONS (3)
  - Pyrexia [Unknown]
  - Cough [Unknown]
  - Viral upper respiratory tract infection [Unknown]

NARRATIVE: CASE EVENT DATE: 20150101
